FAERS Safety Report 7944798-4 (Version None)
Quarter: 2011Q4

REPORT INFORMATION
  Report Type: 
  Country: None (occurrence: None)
  Receive Date: 20111129
  Receipt Date: 20111123
  Transmission Date: 20120403
  Serious: Yes (Death, Life-Threatening, Hospitalization)
  Sender: FDA-Public Use
  Company Number: FR-BRISTOL-MYERS SQUIBB COMPANY-16248239

PATIENT
  Age: 88 Year
  Sex: Male

DRUGS (9)
  1. COUMADIN [Suspect]
     Indication: ATRIAL FIBRILLATION
     Dosage: 1 DF: 1 TAB
     Route: 048
     Dates: start: 20110301, end: 20110926
  2. ATORVASTATIN CALCIUM [Concomitant]
     Route: 048
  3. BISOPROLOL FUMARATE [Concomitant]
     Route: 048
  4. CALCIPARINE [Suspect]
     Indication: ATRIAL FIBRILLATION
     Route: 058
     Dates: start: 20110922, end: 20110926
  5. ASPIRIN [Suspect]
     Indication: MYOCARDIAL ISCHAEMIA
     Dosage: 1 DF:1 SACHET FORMULATION: KARDEGIC 75MG
     Route: 048
     Dates: end: 20110926
  6. LASIX [Concomitant]
     Dosage: 1 DF: 40MG
     Route: 048
  7. POTASSIUM CHLORIDE [Concomitant]
     Dosage: 1 DF: 3 CAPS/DAY DIFFU-K 600MG
     Route: 048
  8. PANTOPRAZOLE [Concomitant]
     Route: 048
  9. FORTIMEL [Concomitant]
     Indication: MALNUTRITION
     Dosage: 1 DF: TWO UNIT NOS
     Route: 048
     Dates: start: 20110923

REACTIONS (2)
  - SUBDURAL HAEMATOMA [None]
  - CARDIAC FAILURE [None]
